FAERS Safety Report 20762145 (Version 1)
Quarter: 2022Q2

REPORT INFORMATION
  Report Type: Report from Study
  Country: US (occurrence: US)
  Receive Date: 20220428
  Receipt Date: 20220428
  Transmission Date: 20220720
  Serious: Yes (Other)
  Sender: FDA-Public Use
  Company Number: US-GILEAD-2022-0578611

PATIENT
  Age: 49 Year
  Sex: Female

DRUGS (1)
  1. AZTREONAM LYSINE [Suspect]
     Active Substance: AZTREONAM LYSINE
     Indication: Bronchiectasis
     Dosage: 75 MG, TID FOR 28 DAYS ON/28 DAYS OFF
     Route: 055
     Dates: start: 20220211

REACTIONS (4)
  - Rheumatoid arthritis [Not Recovered/Not Resolved]
  - Pain [Unknown]
  - Malaise [Unknown]
  - Off label use [Not Recovered/Not Resolved]
